FAERS Safety Report 20908025 (Version 3)
Quarter: 2022Q3

REPORT INFORMATION
  Report Type: Other
  Country: US (occurrence: None)
  Receive Date: 20220602
  Receipt Date: 20220705
  Transmission Date: 20221027
  Serious: No
  Sender: FDA-Public Use
  Company Number: US-ROCHE-3109293

PATIENT
  Sex: Male
  Weight: 127.12 kg

DRUGS (5)
  1. OCREVUS [Suspect]
     Active Substance: OCRELIZUMAB
     Indication: Relapsing-remitting multiple sclerosis
     Dosage: DOT: 26-JUL-2018, 09-AUG-2018, 30-NOV-2021
     Route: 042
     Dates: start: 2018
  2. PFIZER-BIONTECH COVID-19 VACCINE [Suspect]
     Active Substance: TOZINAMERAN
     Indication: COVID-19 prophylaxis
     Route: 065
  3. LISINOPRIL [Concomitant]
     Active Substance: LISINOPRIL
     Indication: Hypertension
  4. HYDROCHLOROTHIAZIDE [Concomitant]
     Active Substance: HYDROCHLOROTHIAZIDE
     Indication: Hypertension
  5. BACLOFEN [Concomitant]
     Active Substance: BACLOFEN
     Indication: Muscle spasticity
     Dosage: 2-3 PILLS AT A TIME UP TO 10 PILLS A DAY AS NEEDED FOR MUSCLE SPASTICITY

REACTIONS (3)
  - COVID-19 [Recovered/Resolved]
  - Therapy non-responder [Unknown]
  - Walking aid user [Unknown]

NARRATIVE: CASE EVENT DATE: 20190101
